FAERS Safety Report 12191737 (Version 1)
Quarter: 2016Q1

REPORT INFORMATION
  Report Type: Spontaneous
  Country: US (occurrence: US)
  Receive Date: 20160318
  Receipt Date: 20160318
  Transmission Date: 20160526
  Serious: No
  Sender: FDA-Public Use
  Company Number: US-PFIZER INC-2016112665

PATIENT
  Age: 7 Year

DRUGS (1)
  1. ADVIL [Suspect]
     Active Substance: IBUPROFEN
     Dosage: UNK

REACTIONS (4)
  - Poor quality drug administered [Unknown]
  - Drug administered to patient of inappropriate age [Unknown]
  - Vomiting [Unknown]
  - Drug administration error [Unknown]
